FAERS Safety Report 16690877 (Version 1)
Quarter: 2019Q3

REPORT INFORMATION
  Report Type: Spontaneous
  Country: FR (occurrence: FR)
  Receive Date: 20190811
  Receipt Date: 20190811
  Transmission Date: 20191004
  Serious: Yes (Other)
  Sender: FDA-Public Use
  Company Number: FR-ROCHE-2377027

PATIENT
  Age: 58 Year
  Sex: Female
  Weight: 90 kg

DRUGS (5)
  1. ROACTEMRA [Suspect]
     Active Substance: TOCILIZUMAB
     Indication: RHEUMATOID ARTHRITIS
     Dosage: 3 PERFUSIONS, RECENT DOSE ON 11/JUL/2019
     Route: 042
     Dates: start: 20190405
  2. CORTANCYL [Concomitant]
     Active Substance: PREDNISONE
  3. DOLIPRANE [Concomitant]
     Active Substance: ACETAMINOPHEN
  4. FUROSEMIDE. [Concomitant]
     Active Substance: FUROSEMIDE
  5. COVERAM [Concomitant]
     Active Substance: AMLODIPINE\PERINDOPRIL

REACTIONS (1)
  - Granuloma annulare [Not Recovered/Not Resolved]

NARRATIVE: CASE EVENT DATE: 20190610
